FAERS Safety Report 12433867 (Version 1)
Quarter: 2016Q2

REPORT INFORMATION
  Report Type: Spontaneous
  Country: US (occurrence: US)
  Receive Date: 20160603
  Receipt Date: 20160603
  Transmission Date: 20160815
  Serious: Yes (Other)
  Sender: FDA-Public Use
  Company Number: US-MDT-ADR-2015-02420

PATIENT
  Age: 58 Year
  Sex: Male

DRUGS (16)
  1. FOLIC ACID. [Suspect]
     Active Substance: FOLIC ACID
     Route: 065
  2. URSODIOL. [Suspect]
     Active Substance: URSODIOL
     Route: 065
  3. COMPOUNDED BACLOFEN [Suspect]
     Active Substance: BACLOFEN
     Route: 037
  4. DILAUDID [Suspect]
     Active Substance: HYDROMORPHONE HYDROCHLORIDE
     Dosage: 10.056MG/DAY TO 8MG/DAY
     Route: 037
  5. MIRALAX [Suspect]
     Active Substance: POLYETHYLENE GLYCOL 3350
     Route: 065
  6. THIAMINE. [Suspect]
     Active Substance: THIAMINE
     Route: 065
  7. DILAUDID [Suspect]
     Active Substance: HYDROMORPHONE HYDROCHLORIDE
     Dosage: 10.056 MG/DAY
     Route: 037
  8. BACLOFEN. [Suspect]
     Active Substance: BACLOFEN
     Route: 048
  9. BUPIVACAINE. [Suspect]
     Active Substance: BUPIVACAINE
     Dosage: 1.8MG/DAY
     Route: 037
  10. LASIX [Suspect]
     Active Substance: FUROSEMIDE
     Route: 065
  11. POTASSIUM CHLORIDE. [Suspect]
     Active Substance: POTASSIUM CHLORIDE
     Route: 065
  12. COMPOUNDED BACLOFEN [Suspect]
     Active Substance: BACLOFEN
     Dosage: 251.39 MCG/DAY
     Route: 037
  13. SEROQUEL [Suspect]
     Active Substance: QUETIAPINE FUMARATE
     Route: 065
  14. LORAZEPAM. [Suspect]
     Active Substance: LORAZEPAM
     Route: 065
  15. BUPIVACAINE. [Suspect]
     Active Substance: BUPIVACAINE
     Dosage: 2.2625 MG/DAY
     Route: 037
  16. OMEPRAZOLE. [Suspect]
     Active Substance: OMEPRAZOLE
     Route: 065

REACTIONS (10)
  - Dizziness [Unknown]
  - Implant site extravasation [Unknown]
  - Stress [Unknown]
  - Depression [Unknown]
  - Dry mouth [Unknown]
  - Constipation [Unknown]
  - Medical device site pruritus [Unknown]
  - Dyspnoea [Unknown]
  - Medical device site rash [Unknown]
  - Cerebrospinal fluid leakage [Unknown]

NARRATIVE: CASE EVENT DATE: 201512
